FAERS Safety Report 6598805-4 (Version None)
Quarter: 2010Q1

REPORT INFORMATION
  Report Type: 
  Country: None (occurrence: None)
  Receive Date: 20100216
  Receipt Date: 20100203
  Transmission Date: 20100710
  Serious: Yes (Hospitalization)
  Sender: FDA-Public Use
  Company Number: CIP10000268

PATIENT
  Age: 70 Year
  Sex: Female

DRUGS (4)
  1. RISEDRONATE SODIUM [Suspect]
     Indication: OSTEOPOROSIS
     Dosage: ORAL
     Route: 048
     Dates: start: 20031001, end: 20071017
  2. INOLAXOL /00561901/ (STERCULIA URENS) [Concomitant]
  3. KALCIPOS (CALCIUM CARBONATE) [Concomitant]
  4. OCULAC /00042801/ (POLYVIDONE) [Concomitant]

REACTIONS (2)
  - FEMUR FRACTURE [None]
  - PATHOLOGICAL FRACTURE [None]
